FAERS Safety Report 4506050-9 (Version None)
Quarter: 2004Q4

REPORT INFORMATION
  Report Type: 
  Country: None (occurrence: None)
  Receive Date: 20041025
  Receipt Date: 20040316
  Transmission Date: 20050328
  Serious: Yes (Other)
  Sender: FDA-Public Use
  Company Number: US-JNJFOC-20030803726

PATIENT
  Age: 45 Year
  Sex: Female
  Weight: 93.441 kg

DRUGS (3)
  1. REMICADE [Suspect]
     Indication: RHEUMATOID ARTHRITIS
     Dosage: 1 IN 1 DAY INTRAVENOUS
     Route: 042
     Dates: start: 20030501
  2. ARAVA [Concomitant]
  3. CELEBREX [Concomitant]

REACTIONS (2)
  - SINUSITIS [None]
  - TONSILLITIS [None]
